FAERS Safety Report 6446554-5 (Version None)
Quarter: 2009Q4

REPORT INFORMATION
  Report Type: 
  Country: None (occurrence: None)
  Receive Date: 20091119
  Receipt Date: 20091116
  Transmission Date: 20100525
  Serious: Yes (Hospitalization, Other)
  Sender: FDA-Public Use
  Company Number: IT-ROXANE LABORATORIES, INC.-2009-RO-01168RO

PATIENT
  Age: 19 Year
  Sex: Female

DRUGS (6)
  1. AZATHIOPRINE [Suspect]
     Indication: CROHN'S DISEASE
  2. PREDNISOLONE [Suspect]
     Indication: CROHN'S DISEASE
     Dosage: 10 MG
  3. VALACYCLOVIR HCL [Concomitant]
     Indication: PROPHYLAXIS
     Dosage: 1000 MG
     Route: 048
  4. INFLIXIMAB [Concomitant]
     Indication: CROHN'S DISEASE
  5. ANTIBIOTICS [Concomitant]
     Indication: CLOSTRIDIAL INFECTION
  6. ANTIBIOTICS [Concomitant]
     Indication: CLOSTRIDIUM DIFFICILE COLITIS

REACTIONS (3)
  - CLOSTRIDIAL INFECTION [None]
  - HERPES SIMPLEX [None]
  - MALNUTRITION [None]
